FAERS Safety Report 7033480-6 (Version None)
Quarter: 2010Q4

REPORT INFORMATION
  Report Type: 
  Country: None (occurrence: None)
  Receive Date: 20101005
  Receipt Date: 20100923
  Transmission Date: 20110411
  Serious: No
  Sender: FDA-Public Use
  Company Number: 8051126

PATIENT
  Sex: Female
  Weight: 65.9 kg

DRUGS (4)
  1. KEPPRA [Suspect]
     Indication: CONVULSION
     Dosage: (750 MG QD, 750 MG QHS ORAL)
     Route: 048
     Dates: start: 20090331
  2. KEPPRA [Suspect]
     Dosage: (500 MG BID), (750 MG, 750 MG: 1/2 TAB TWICE A DAY)
     Dates: start: 20090224
  3. KEPPRA [Suspect]
     Dosage: (500 MG BID), (750 MG, 750 MG: 1/2 TAB TWICE A DAY)
     Dates: start: 20090901
  4. ARICEPT [Concomitant]

REACTIONS (5)
  - DEMENTIA ALZHEIMER'S TYPE [None]
  - DISEASE PROGRESSION [None]
  - LETHARGY [None]
  - SOMNOLENCE [None]
  - WRONG TECHNIQUE IN DRUG USAGE PROCESS [None]
